FAERS Safety Report 6317959-8 (Version None)
Quarter: 2009Q3

REPORT INFORMATION
  Report Type: 
  Country: None (occurrence: None)
  Receive Date: 20090821
  Receipt Date: 20090724
  Transmission Date: 20100115
  Serious: No
  Sender: FDA-Public Use
  Company Number: US-BAYER-200912794BCC

PATIENT
  Age: 57 Year
  Sex: Female
  Weight: 59 kg

DRUGS (3)
  1. ALEVE [Suspect]
     Indication: BACK PAIN
     Dosage: TOTAL DAILY DOSE: 440 MG  UNIT DOSE: 220 MG
     Route: 048
     Dates: start: 20090722, end: 20090722
  2. ALEVE [Suspect]
     Dosage: TOTAL DAILY DOSE: 220 MG  UNIT DOSE: 220 MG
     Route: 048
     Dates: start: 20090723
  3. TUMS [Concomitant]
     Dosage: TOTAL DAILY DOSE: 1 DF  UNIT DOSE: 1 DF
     Route: 065
     Dates: start: 20090723

REACTIONS (3)
  - PRURITUS [None]
  - RASH [None]
  - URTICARIA [None]
